FAERS Safety Report 8086108-0 (Version None)
Quarter: 2012Q1

REPORT INFORMATION
  Report Type: 
  Country: None (occurrence: None)
  Receive Date: 20120128
  Receipt Date: 20110602
  Transmission Date: 20120608
  Serious: No
  Sender: FDA-Public Use
  Company Number: US-ABBOTT-11P-163-0730178-00

PATIENT
  Sex: Female
  Weight: 53.118 kg

DRUGS (3)
  1. VICODIN [Concomitant]
     Indication: PAIN
  2. HUMIRA [Suspect]
     Dates: start: 20110601
  3. HUMIRA [Suspect]
     Indication: CROHN'S DISEASE
     Dates: start: 20100201, end: 20110601

REACTIONS (2)
  - INCORRECT DOSE ADMINISTERED [None]
  - ANXIETY [None]
